FAERS Safety Report 7644673-9 (Version None)
Quarter: 2011Q3

REPORT INFORMATION
  Report Type: 
  Country: None (occurrence: None)
  Receive Date: 20110729
  Receipt Date: 20110719
  Transmission Date: 20111222
  Serious: Yes (Hospitalization)
  Sender: FDA-Public Use
  Company Number: 2007BI021176

PATIENT
  Age: 56 Year
  Sex: Male

DRUGS (2)
  1. AVONEX [Suspect]
     Indication: MULTIPLE SCLEROSIS
     Route: 030
     Dates: start: 20000714
  2. AVONEX [Suspect]
     Route: 030
     Dates: start: 20000601

REACTIONS (1)
  - PROSTATE CANCER [None]
